FAERS Safety Report 23936251 (Version 1)
Quarter: 2024Q2

REPORT INFORMATION
  Report Type: Spontaneous
  Country: US (occurrence: US)
  Receive Date: 20240604
  Receipt Date: 20240604
  Transmission Date: 20240715
  Serious: Yes (Hospitalization, Other)
  Sender: FDA-Public Use
  Company Number: US-CADILA HEALTHCARE LIMITED-US-ZYDUS-107640

PATIENT

DRUGS (4)
  1. BUPROPION [Suspect]
     Active Substance: BUPROPION
     Indication: Product used for unknown indication
     Dosage: UNK
     Route: 065
  2. PROPRANOLOL [Suspect]
     Active Substance: PROPRANOLOL HYDROCHLORIDE
     Indication: Product used for unknown indication
     Dosage: UNK
     Route: 065
  3. ALCOHOL [Suspect]
     Active Substance: ALCOHOL
     Indication: Product used for unknown indication
     Dosage: UNK
     Route: 065
  4. CHLORDIAZEPOXIDE [Suspect]
     Active Substance: CHLORDIAZEPOXIDE
     Indication: Product used for unknown indication
     Dosage: UNK
     Route: 065

REACTIONS (10)
  - Acute kidney injury [Recovering/Resolving]
  - Areflexia [Recovering/Resolving]
  - Myocardial ischaemia [Recovering/Resolving]
  - Renal tubular necrosis [Recovering/Resolving]
  - Cardiogenic shock [Recovered/Resolved]
  - Coma [Recovering/Resolving]
  - Generalised tonic-clonic seizure [Recovering/Resolving]
  - Heart failure with reduced ejection fraction [Recovering/Resolving]
  - Right ventricular dysfunction [Recovering/Resolving]
  - Overdose [Unknown]
